FAERS Safety Report 7276438-4 (Version None)
Quarter: 2011Q1

REPORT INFORMATION
  Report Type: 
  Country: None (occurrence: None)
  Receive Date: 20110204
  Receipt Date: 20110201
  Transmission Date: 20110831
  Serious: Yes (Other)
  Sender: FDA-Public Use
  Company Number: US-PFIZER INC-2008022014

PATIENT
  Sex: Female
  Weight: 75 kg

DRUGS (28)
  1. CHANTIX [Suspect]
     Indication: SMOKING CESSATION THERAPY
     Dosage: 0.5 MG, DAILY
     Route: 048
     Dates: start: 20070101, end: 20100101
  2. CHANTIX [Suspect]
     Dosage: 1 MG, 2X/DAY
     Route: 048
     Dates: start: 20090901
  3. ACETYLSALICYLIC ACID [Concomitant]
     Dosage: 81 MG, 1X/DAY
  4. XANAX [Concomitant]
     Dosage: 1 MG, 2X/DAY
  5. CHANTIX [Suspect]
     Dosage: 1 MG, 2X/DAY
     Route: 048
     Dates: start: 20080101
  6. CELEBREX [Suspect]
     Indication: OSTEOARTHRITIS
     Dosage: UNK
     Route: 048
  7. GLIPIZIDE [Suspect]
     Indication: DIABETES MELLITUS
     Dosage: 5 MG, 3X/DAY
     Route: 048
     Dates: start: 20090101
  8. CELEXA [Concomitant]
     Dosage: 20 MG, 1X/DAY
     Route: 048
  9. ATARAX [Concomitant]
     Dosage: 10 MG, 2X/DAY
  10. VITAMIN D [Concomitant]
     Dosage: UNK UG, WEEKLY
     Route: 048
  11. ASCORBIC ACID [Concomitant]
     Dosage: 1000 MG, 2X/DAY
  12. LOPRESSOR [Concomitant]
     Indication: HYPERTENSION
     Dosage: UNK
  13. VASOTEC [Suspect]
     Indication: HYPERTENSION
     Dosage: UNK
     Route: 048
  14. PRILOSEC [Concomitant]
     Dosage: 20 MG, 1X/DAY
  15. NITROGLYCERIN [Concomitant]
     Dosage: 2.5 MG, 2X/DAY
     Route: 048
  16. VITAMIN B [Concomitant]
     Dosage: UNK
     Route: 048
  17. CELEBREX [Suspect]
     Indication: RHEUMATOID ARTHRITIS
  18. LANTUS [Concomitant]
     Indication: DIABETES MELLITUS
     Dosage: 25 UNITS, 2X/DAY
  19. CHANTIX [Suspect]
     Dosage: 0.5 MG, 1X/DAY
     Dates: start: 20080101
  20. NOVOLOG [Suspect]
     Indication: DIABETES MELLITUS
     Dosage: UNK
     Dates: end: 20090101
  21. VALSARTAN [Suspect]
     Indication: HYPERTENSION
     Dosage: UNK
     Route: 048
  22. LOPERAMIDE HYDROCHLORIDE [Concomitant]
     Dosage: UNK
     Route: 048
  23. VITAMIN B6 [Concomitant]
     Indication: DIABETIC NEUROPATHY
     Dosage: 100 MG, 1X/DAY
  24. CHANTIX [Suspect]
     Dosage: UNK
     Dates: start: 20090601
  25. CALCIUM WITH VITAMIN D [Concomitant]
     Dosage: 500 MG, 2X/DAY
  26. DITROPAN [Concomitant]
     Dosage: 5 MG, 2X/DAY
     Route: 048
  27. LASIX [Concomitant]
     Dosage: UNK
  28. NEURONTIN [Concomitant]
     Indication: DIABETIC NEUROPATHY
     Dosage: 600 MG, 2X/DAY
     Route: 048

REACTIONS (16)
  - DRUG HYPERSENSITIVITY [None]
  - BLOOD GLUCOSE DECREASED [None]
  - HYPERTENSION [None]
  - HYPERSENSITIVITY [None]
  - TREMOR [None]
  - DRUG INEFFECTIVE [None]
  - DEPRESSION [None]
  - STRESS [None]
  - BLOOD IRON DECREASED [None]
  - DECREASED APPETITE [None]
  - NAUSEA [None]
  - DRY SKIN [None]
  - SOMNOLENCE [None]
  - FRUSTRATION [None]
  - MUSCLE SPASMS [None]
  - VOMITING [None]
